FAERS Safety Report 18750499 (Version 3)
Quarter: 2021Q1

REPORT INFORMATION
  Report Type: Other
  Country: JP (occurrence: JP)
  Receive Date: 20210118
  Receipt Date: 20210203
  Transmission Date: 20210419
  Serious: Yes (Death, Hospitalization)
  Sender: FDA-Public Use
  Company Number: JP-ROCHE-2750578

PATIENT
  Age: 70 Year
  Sex: Male
  Weight: 68 kg

DRUGS (4)
  1. PACLITAXEL. [Concomitant]
     Active Substance: PACLITAXEL
     Indication: LUNG ADENOCARCINOMA
     Route: 041
     Dates: start: 20191003, end: 20200313
  2. CARBOPLATIN. [Concomitant]
     Active Substance: CARBOPLATIN
     Indication: LUNG ADENOCARCINOMA
     Route: 041
     Dates: start: 20191003, end: 20200313
  3. AVASTIN [Suspect]
     Active Substance: BEVACIZUMAB
     Indication: LUNG ADENOCARCINOMA
     Route: 041
     Dates: start: 20191003, end: 20200731
  4. TECENTRIQ [Suspect]
     Active Substance: ATEZOLIZUMAB
     Indication: LUNG ADENOCARCINOMA
     Route: 041
     Dates: start: 20191003, end: 20200731

REACTIONS (2)
  - Disease progression [Fatal]
  - Cholangitis sclerosing [Recovered/Resolved]

NARRATIVE: CASE EVENT DATE: 20200821
